FAERS Safety Report 5034011-2 (Version None)
Quarter: 2006Q2

REPORT INFORMATION
  Report Type: 
  Country: None (occurrence: None)
  Receive Date: 20060626
  Receipt Date: 20050209
  Transmission Date: 20061013
  Serious: Yes (Death, Other)
  Sender: FDA-Public Use
  Company Number: PHNU2005DE00893

PATIENT
  Sex: Male
  Weight: 69.614 kg

DRUGS (8)
  1. AREDIA [Suspect]
     Indication: PLASMACYTOMA
     Dosage: 45 MG, QMO
     Route: 042
     Dates: start: 20001023, end: 20010912
  2. ZOMETA [Suspect]
     Indication: MULTIPLE MYELOMA
     Dosage: 4 MG EVERY 6 WEEKS
     Route: 042
     Dates: start: 20040101, end: 20041001
  3. ZOMETA [Suspect]
     Dosage: 4 MG EVERY 6 WEEKS
     Route: 042
     Dates: start: 20011002, end: 20031201
  4. CARMEN [Concomitant]
     Dosage: 1 DF, QD
     Route: 048
  5. CORDANUM [Concomitant]
     Dosage: 100 MG, QD
     Route: 048
  6. ALLOPURINOL [Concomitant]
     Dosage: 150 MG, QD
     Route: 048
  7. MELPHALAN [Concomitant]
     Dosage: 6 CYCLES EVERY 4 WEEKS
     Route: 065
     Dates: start: 20001023, end: 20010309
  8. PREDNISOLONE [Concomitant]
     Dosage: 6 CYCLES EVERY 4 WEEKS
     Route: 065
     Dates: start: 20001023, end: 20010309

REACTIONS (7)
  - GINGIVAL INFECTION [None]
  - IMPAIRED HEALING [None]
  - OESOPHAGEAL CARCINOMA [None]
  - ORAL DISCOMFORT [None]
  - OSTEONECROSIS [None]
  - STOMATITIS [None]
  - TOOTH EXTRACTION [None]
